FAERS Safety Report 14881125 (Version 1)
Quarter: 2018Q2

REPORT INFORMATION
  Report Type: Spontaneous
  Country: US (occurrence: US)
  Receive Date: 20180511
  Receipt Date: 20180511
  Transmission Date: 20180711
  Serious: Yes (Hospitalization, Other)
  Sender: FDA-Public Use
  Company Number: US-UCBSA-2017012491

PATIENT
  Age: 20 Year
  Sex: Male
  Weight: 99 kg

DRUGS (18)
  1. ZONISAMIDE. [Concomitant]
     Active Substance: ZONISAMIDE
     Indication: SEIZURE
     Dosage: UNK
  2. DEPAKOTE [Concomitant]
     Active Substance: DIVALPROEX SODIUM
     Indication: SEIZURE
     Dosage: UNK
  3. KEPPRA [Suspect]
     Active Substance: LEVETIRACETAM
     Indication: SEIZURE
     Dosage: UNK
     Dates: start: 200509
  4. KEPPRA [Suspect]
     Active Substance: LEVETIRACETAM
     Dosage: 1500 MG DAILY
     Route: 048
  5. LAMICTAL [Concomitant]
     Active Substance: LAMOTRIGINE
     Indication: SEIZURE
     Dosage: UNK
  6. KEPPRA [Suspect]
     Active Substance: LEVETIRACETAM
     Dosage: 1000 MG IN THE MORNING, 500 MG IN THE EVENING AND 1500 MG IN THE EVENING, 3X/DAY (TID)
  7. TRILEPTAL [Concomitant]
     Active Substance: OXCARBAZEPINE
     Indication: SEIZURE
     Dosage: UNK
  8. KEPPRA [Suspect]
     Active Substance: LEVETIRACETAM
     Dosage: 750 MG EVERY DAY
     Route: 048
  9. BRIVIACT [Suspect]
     Active Substance: BRIVARACETAM
     Indication: SEIZURE
     Dosage: UNK
  10. VALPROIC ACID. [Concomitant]
     Active Substance: VALPROIC ACID
     Indication: SEIZURE
     Dosage: UNK
  11. TOPAMAX [Concomitant]
     Active Substance: TOPIRAMATE
     Indication: SEIZURE
     Dosage: UNK
  12. KEPPRA [Suspect]
     Active Substance: LEVETIRACETAM
     Dosage: 1000MG IN THE MORNING AND 1500 MG IN THE EVENING, 2X/DAY (BID)
  13. ATIVAN [Suspect]
     Active Substance: LORAZEPAM
     Indication: PRODUCT USED FOR UNKNOWN INDICATION
     Dosage: UNK
  14. TEGRETOL [Concomitant]
     Active Substance: CARBAMAZEPINE
     Indication: SEIZURE
     Dosage: UNK
  15. OLANZAPINE. [Concomitant]
     Active Substance: OLANZAPINE
     Indication: SEIZURE
     Dosage: UNK
  16. DILANTIN [Concomitant]
     Active Substance: PHENYTOIN
     Indication: SEIZURE
     Dosage: UNK
     Dates: end: 200509
  17. BANZEL [Concomitant]
     Active Substance: RUFINAMIDE
     Indication: SEIZURE
     Dosage: UNK
  18. VIMPAT [Suspect]
     Active Substance: LACOSAMIDE
     Indication: PRODUCT USED FOR UNKNOWN INDICATION
     Dosage: UNK

REACTIONS (17)
  - Seizure [Unknown]
  - Urinary incontinence [Unknown]
  - Aura [Unknown]
  - Generalised tonic-clonic seizure [Unknown]
  - Memory impairment [Unknown]
  - Rash [Unknown]
  - Insomnia [Unknown]
  - Focal dyscognitive seizures [Unknown]
  - Aggression [Unknown]
  - Road traffic accident [Unknown]
  - Suicidal ideation [Unknown]
  - Energy increased [Unknown]
  - Agitation [Unknown]
  - Drug ineffective [Unknown]
  - Off label use [Unknown]
  - Logorrhoea [Unknown]
  - Treatment noncompliance [Unknown]

NARRATIVE: CASE EVENT DATE: 200509
